FAERS Safety Report 16936584 (Version 2)
Quarter: 2019Q4

REPORT INFORMATION
  Report Type: Spontaneous
  Country: DE (occurrence: DE)
  Receive Date: 20191018
  Receipt Date: 20191127
  Transmission Date: 20200122
  Serious: No
  Sender: FDA-Public Use
  Company Number: DE-TOLMAR, INC.-19DE000588

PATIENT
  Sex: Male

DRUGS (1)
  1. ELIGARD [Suspect]
     Active Substance: LEUPROLIDE ACETATE
     Indication: PRODUCT USED FOR UNKNOWN INDICATION
     Dosage: 22.5 MILLIGRAM; UNKNOWN FREQ.
     Route: 065

REACTIONS (3)
  - Wrong technique in product usage process [None]
  - Syringe issue [None]
  - Intercepted product preparation error [None]

NARRATIVE: CASE EVENT DATE: 20191001
